FAERS Safety Report 8588839 (Version 8)
Quarter: 2014Q1

REPORT INFORMATION
  Report Type: Report from Study
  Country: DE (occurrence: DE)
  Receive Date: 20120531
  Receipt Date: 20140227
  Transmission Date: 20141002
  Serious: Yes (Death)
  Sender: FDA-Public Use
  Company Number: DE-CELGENEUS-062-C5013-12053200

PATIENT
  Age: 58 Year
  Sex: Male
  Weight: 90.5 kg

DRUGS (44)
  1. CC-5013 [Suspect]
     Indication: CHRONIC LYMPHOCYTIC LEUKAEMIA
     Dosage: 15 MILLIGRAM
     Route: 048
     Dates: start: 20120522, end: 20120524
  2. MORPHINE SULPHATE [Concomitant]
     Indication: SPINAL COLUMN STENOSIS
     Dosage: 90 MILLIGRAM
     Route: 065
     Dates: start: 20120516, end: 20120523
  3. MORPHINE SULPHATE [Concomitant]
     Route: 065
     Dates: start: 20120524, end: 20120525
  4. OMEPRAZOLE [Concomitant]
     Indication: PRODUCT USED FOR UNKNOWN INDICATION
     Dosage: 20 MILLIGRAM
     Route: 065
     Dates: end: 20120525
  5. OMEPRAZOLE [Concomitant]
     Dosage: 20 MILLIGRAM
     Route: 065
     Dates: end: 20120525
  6. PIROXICAM [Concomitant]
     Indication: POLYARTHRITIS
     Dosage: 20 MILLIGRAM
     Route: 065
     Dates: end: 20120525
  7. PIROXICAM [Concomitant]
     Dosage: 20 MILLIGRAM
     Route: 065
     Dates: end: 20120525
  8. NIFEDIPINA [Concomitant]
     Indication: HYPERTENSION
     Dosage: 100 MILLIGRAM
     Route: 065
     Dates: start: 201010, end: 20120525
  9. NIFEDIPINA [Concomitant]
     Dosage: 20 MILLIGRAM
     Route: 065
     Dates: end: 20120525
  10. NIFEDIPINA [Concomitant]
     Dosage: 30 MILLIGRAM
     Route: 065
     Dates: end: 20120525
  11. BISOPROLOL [Concomitant]
     Indication: HYPERTENSION
     Dosage: 5 MILLIGRAM
     Route: 065
     Dates: end: 20120525
  12. BISOPROLOL [Concomitant]
     Dosage: 20 MILLIGRAM
     Route: 065
     Dates: end: 20120525
  13. BISOPROLOL [Concomitant]
     Dosage: 30 MILLIGRAM
     Route: 065
     Dates: end: 20120525
  14. DIGITOXIN [Concomitant]
     Indication: PRODUCT USED FOR UNKNOWN INDICATION
     Dosage: .1 MILLIGRAM
     Route: 065
     Dates: end: 20120525
  15. DIGITOXIN [Concomitant]
     Dosage: 20 MILLIGRAM
     Route: 065
     Dates: end: 20120525
  16. DIGITOXIN [Concomitant]
     Dosage: 30 MILLIGRAM
     Route: 065
     Dates: end: 20120525
  17. MOXONIDIN [Concomitant]
     Indication: HYPERTENSION
     Dosage: .3 MILLIGRAM
     Route: 065
     Dates: end: 20120525
  18. MOXONIDIN [Concomitant]
     Dosage: 20 MILLIGRAM
     Route: 065
     Dates: end: 20120525
  19. MOXONIDIN [Concomitant]
     Dosage: 30 MILLIGRAM
     Route: 065
     Dates: end: 20120525
  20. RAMIPRIL [Concomitant]
     Indication: HYPERTENSION
     Dosage: 5 MILLIGRAM
     Route: 065
     Dates: end: 20120525
  21. RAMIPRIL [Concomitant]
     Dosage: 20 MILLIGRAM
     Route: 065
     Dates: end: 20120525
  22. RAMIPRIL [Concomitant]
     Dosage: 30 MILLIGRAM
     Route: 065
     Dates: end: 20120525
  23. ACICLOVIR [Concomitant]
     Indication: PRODUCT USED FOR UNKNOWN INDICATION
     Dosage: 1200 MILLIGRAM
     Route: 065
     Dates: end: 20120525
  24. ACICLOVIR [Concomitant]
     Dosage: 20 MILLIGRAM
     Route: 065
     Dates: end: 20120525
  25. ACICLOVIR [Concomitant]
     Dosage: 30 MILLIGRAM
     Route: 065
     Dates: end: 20120525
  26. OXYGEN [Concomitant]
     Indication: HYPOXIA
     Route: 065
     Dates: start: 20120522, end: 20120525
  27. DEXAMETHASONE [Concomitant]
     Indication: DYSPNOEA
     Route: 065
     Dates: start: 20120523, end: 20120523
  28. FENTANYL [Concomitant]
     Indication: CHEST PAIN
     Route: 065
     Dates: start: 20120524, end: 20120524
  29. CLONAZEPAM [Concomitant]
     Indication: CHEST PAIN
     Route: 065
     Dates: start: 20120524, end: 20120524
  30. NOVAMINSULFON [Concomitant]
     Indication: SPINAL COLUMN STENOSIS
     Route: 065
     Dates: start: 20120521, end: 20120521
  31. MIDAZOLAM [Concomitant]
     Indication: ANAESTHESIA
     Route: 065
     Dates: start: 20120522, end: 20120522
  32. PREGABALIN [Concomitant]
     Indication: ANALGESIC THERAPY
     Route: 065
     Dates: start: 20120516, end: 20120521
  33. PREGABALIN [Concomitant]
     Route: 065
     Dates: start: 20120522, end: 20120525
  34. FORMOTEROLHEMIFUMARAT [Concomitant]
     Indication: DYSPNOEA
     Route: 065
     Dates: start: 20120523, end: 20120525
  35. SALBUTAMOL [Concomitant]
     Indication: DYSPNOEA
     Route: 065
     Dates: end: 20120525
  36. SALBUTAMOL [Concomitant]
     Indication: ASTHMA
     Route: 065
     Dates: start: 20120522, end: 20120525
  37. POTASSIUM CHLORIDE [Concomitant]
     Indication: HYPOKALAEMIA
     Route: 065
     Dates: start: 20120521, end: 20120525
  38. SODIUM CHLORIDE [Concomitant]
     Indication: PROPHYLAXIS
     Route: 065
     Dates: start: 20120521, end: 20120521
  39. LORAZEPAM [Concomitant]
     Indication: RESTLESSNESS
     Route: 065
     Dates: start: 20120520, end: 20120525
  40. CERTOPARIN [Concomitant]
     Indication: THROMBOSIS PROPHYLAXIS
     Route: 065
     Dates: start: 20120516, end: 20120525
  41. ALLOPURINOL [Concomitant]
     Indication: PROPHYLAXIS
     Route: 065
     Dates: start: 20120519, end: 20120525
  42. MACROGOL [Concomitant]
     Indication: PROPHYLAXIS
     Route: 065
     Dates: end: 20120525
  43. CO-TRIMOXAZOLE [Concomitant]
     Indication: INFECTION PROPHYLAXIS
     Route: 065
     Dates: end: 20120525
  44. ACETYLSALICYLIC ACID [Concomitant]
     Indication: THROMBOSIS PROPHYLAXIS
     Dosage: 100 MILLIGRAM
     Route: 065
     Dates: start: 201010, end: 20120525

REACTIONS (1)
  - Myocardial infarction [Fatal]
